FAERS Safety Report 5207876-9 (Version None)
Quarter: 2007Q1

REPORT INFORMATION
  Report Type: 
  Country: None (occurrence: None)
  Receive Date: 20070112
  Receipt Date: 20070105
  Transmission Date: 20070707
  Serious: Yes (Other)
  Sender: FDA-Public Use
  Company Number: FR-PFIZER INC-2007002320

PATIENT
  Age: 76 Year
  Sex: Female

DRUGS (9)
  1. TAHOR [Suspect]
     Indication: MYOCARDIAL ISCHAEMIA
     Dates: start: 19981001, end: 20070103
  2. IRINOTECAN HCL [Interacting]
  3. CETUXIMAB [Interacting]
  4. ATENOLOL [Concomitant]
  5. IDEOS [Concomitant]
  6. DAFLON [Concomitant]
  7. ZANIDIP [Concomitant]
  8. LASIX [Concomitant]
  9. PRACTON [Concomitant]

REACTIONS (3)
  - BLOOD CREATINE PHOSPHOKINASE INCREASED [None]
  - DRUG INTERACTION [None]
  - MYALGIA [None]
